FAERS Safety Report 9061833 (Version 2)
Quarter: 2013Q1

REPORT INFORMATION
  Report Type: Spontaneous
  Country: BE (occurrence: BE)
  Receive Date: 20130128
  Receipt Date: 20130221
  Transmission Date: 20140127
  Serious: Yes (Other)
  Sender: FDA-Public Use
  Company Number: BE-MERCK-1301BEL011841

PATIENT
  Age: 7 Year
  Sex: Male

DRUGS (2)
  1. AERIUS [Suspect]
     Indication: HYPERSENSITIVITY
     Dosage: UNK, 2.5 MG/5 ML
     Route: 048
     Dates: start: 201201
  2. DEPAKIN [Interacting]
     Indication: EPILEPSY
     Dosage: 150 MG, TID
     Route: 048

REACTIONS (2)
  - Epilepsy [Unknown]
  - Drug interaction [Unknown]
